FAERS Safety Report 11461924 (Version 1)
Quarter: 2015Q3

REPORT INFORMATION
  Report Type: Spontaneous
  Country: US (occurrence: US)
  Receive Date: 20150831
  Receipt Date: 20150831
  Transmission Date: 20151125
  Serious: No
  Sender: FDA-Public Use
  Company Number: US-ELI_LILLY_AND_COMPANY-US201009003796

PATIENT
  Age: 38 Year
  Sex: Female

DRUGS (7)
  1. MAGNESIUM [Concomitant]
     Active Substance: MAGNESIUM
     Dosage: 500 MG, DAILY (1/D)
  2. VERAPAMIL [Concomitant]
     Active Substance: VERAPAMIL HYDROCHLORIDE
     Dosage: 240 MG, DAILY (1/D)
  3. XANAX [Concomitant]
     Active Substance: ALPRAZOLAM
     Dosage: UNK, AS NEEDED
  4. CYMBALTA [Suspect]
     Active Substance: DULOXETINE HYDROCHLORIDE
     Indication: MIGRAINE
     Dosage: 30 MG, DAILY (1/D)
     Dates: start: 20100905, end: 20100909
  5. VITAMIN B2 [Concomitant]
     Active Substance: RIBOFLAVIN
     Dosage: 400 MG, DAILY (1/D)
  6. BACTRIM [Concomitant]
     Active Substance: SULFAMETHOXAZOLE\TRIMETHOPRIM
  7. SOMA [Concomitant]
     Active Substance: CARISOPRODOL

REACTIONS (27)
  - Panic attack [Unknown]
  - Heart rate increased [Unknown]
  - Nausea [Unknown]
  - Hallucination, visual [Unknown]
  - Nervousness [Unknown]
  - Dizziness [Unknown]
  - Off label use [Recovered/Resolved]
  - Logorrhoea [Unknown]
  - Photophobia [Unknown]
  - Feeling abnormal [Unknown]
  - Headache [Unknown]
  - Dyspnoea [Unknown]
  - Memory impairment [Unknown]
  - Migraine [Unknown]
  - Musculoskeletal stiffness [Unknown]
  - Cystitis [Unknown]
  - Vertigo [Unknown]
  - Cognitive disorder [Unknown]
  - Presyncope [Unknown]
  - Palpitations [Unknown]
  - Vision blurred [Unknown]
  - Anxiety [Unknown]
  - Asthenia [Unknown]
  - Abdominal pain upper [Unknown]
  - Depressed mood [Unknown]
  - Tobacco abuse [Unknown]
  - Decreased appetite [Unknown]

NARRATIVE: CASE EVENT DATE: 20100905
